FAERS Safety Report 4311341-0 (Version None)
Quarter: 2004Q1

REPORT INFORMATION
  Report Type: 
  Country: None (occurrence: None)
  Receive Date: 20040302
  Receipt Date: 20030115
  Transmission Date: 20041129
  Serious: Yes (Hospitalization)
  Sender: FDA-Public Use
  Company Number: BDI-004807

PATIENT
  Age: 83 Year
  Sex: Male

DRUGS (2)
  1. ISOVUE-300 [Suspect]
     Indication: CEREBROVASCULAR ACCIDENT
     Dosage: 100 ML ONCE IV
     Dates: start: 20030115, end: 20030115
  2. ISOVUE-300 [Suspect]
     Indication: COMPUTERISED TOMOGRAM
     Dosage: 100 ML ONCE IV
     Dates: start: 20030115, end: 20030115

REACTIONS (2)
  - EXTRAVASATION [None]
  - INJECTION SITE OEDEMA [None]
